FAERS Safety Report 16749419 (Version 4)
Quarter: 2022Q2

REPORT INFORMATION
  Report Type: Spontaneous
  Country: US (occurrence: US)
  Receive Date: 20190828
  Receipt Date: 20220405
  Transmission Date: 20220721
  Serious: Yes (Death, Other)
  Sender: FDA-Public Use
  Company Number: US-PFIZER INC-2019360974

PATIENT
  Age: 83 Year
  Sex: Female
  Weight: 65.77 kg

DRUGS (9)
  1. IBRANCE [Suspect]
     Active Substance: PALBOCICLIB
     Indication: Breast cancer metastatic
     Dosage: 100 MG, CYCLIC (21 DAYS, THEN OFF FOR 7 DAYS)
     Route: 048
     Dates: start: 201907, end: 2019
  2. IBRANCE [Suspect]
     Active Substance: PALBOCICLIB
     Dosage: 100 MG, CYCLIC, 21 DAYS ON AND 7 DAYS OFF
  3. IBRANCE [Suspect]
     Active Substance: PALBOCICLIB
     Dosage: 125 MG, CYCLIC FOR 21 DAYS, THEN 7 DAYS
     Dates: end: 20190820
  4. IBRANCE [Suspect]
     Active Substance: PALBOCICLIB
     Dosage: 100 MG, 1X/DAY
     Dates: start: 201908
  5. IBRANCE [Suspect]
     Active Substance: PALBOCICLIB
     Dosage: 125 MG
     Dates: start: 201907
  6. IBRANCE [Suspect]
     Active Substance: PALBOCICLIB
     Dosage: 100 MG
     Dates: end: 202104
  7. TAMOXIFEN [Concomitant]
     Active Substance: TAMOXIFEN
     Indication: Breast cancer metastatic
     Dosage: 20 MG, 1X/DAY
     Route: 048
     Dates: start: 201907
  8. MIRALAX [Concomitant]
     Active Substance: POLYETHYLENE GLYCOL 3350
     Indication: Constipation
     Dosage: UNK
  9. FUROSEMIDE [Concomitant]
     Active Substance: FUROSEMIDE
     Indication: Diuretic therapy
     Dosage: UNK

REACTIONS (18)
  - Death [Fatal]
  - Impaired healing [Unknown]
  - Neuropathy peripheral [Unknown]
  - Wound dehiscence [Unknown]
  - Alopecia [Unknown]
  - Asthenia [Unknown]
  - Chills [Unknown]
  - Decreased appetite [Unknown]
  - Fall [Unknown]
  - Fatigue [Unknown]
  - Feeling hot [Unknown]
  - Full blood count abnormal [Unknown]
  - Headache [Recovering/Resolving]
  - Mental disorder [Unknown]
  - Nausea [Unknown]
  - Pyrexia [Unknown]
  - Tumour marker increased [Unknown]
  - White blood cell count decreased [Recovered/Resolved]

NARRATIVE: CASE EVENT DATE: 20190101
